FAERS Safety Report 18717762 (Version 2)
Quarter: 2024Q3

REPORT INFORMATION
  Report Type: Report from Study
  Country: IT (occurrence: IT)
  Receive Date: 20210108
  Receipt Date: 20240818
  Transmission Date: 20241016
  Serious: Yes (Hospitalization, Other)
  Sender: ROCHE
  Company Number: IT-ROCHE-2745339

PATIENT

DRUGS (2)
  1. TOCILIZUMAB [Suspect]
     Active Substance: TOCILIZUMAB
     Indication: Giant cell arteritis
     Route: 042
  2. TOCILIZUMAB [Suspect]
     Active Substance: TOCILIZUMAB
     Indication: Giant cell arteritis
     Route: 058

REACTIONS (8)
  - Thrombocytopenia [Recovered/Resolved]
  - Urticaria [Recovered/Resolved]
  - Leukopenia [Recovered/Resolved]
  - Hypogammaglobulinaemia [Recovered/Resolved]
  - Neutropenia [Recovered/Resolved]
  - Infection [Unknown]
  - Abdominal pain [Unknown]
  - Dysphagia [Unknown]
